FAERS Safety Report 17364949 (Version 3)
Quarter: 2020Q1

REPORT INFORMATION
  Report Type: Spontaneous
  Country: IN (occurrence: IN)
  Receive Date: 20200204
  Receipt Date: 20200326
  Transmission Date: 20200409
  Serious: Yes (Other)
  Sender: FDA-Public Use
  Company Number: IN-CIPLA LTD.-2020IN00120

PATIENT

DRUGS (24)
  1. LEVOLIN (LEVOSALBUTAMOL) [Suspect]
     Active Substance: LEVALBUTEROL
     Indication: ASTHMA
     Dosage: UNK, BID (2 PUFFS)
  2. NEBI [Concomitant]
     Indication: HYPERTENSION
     Dosage: 5 MILLIGRAM, QD (AFTER DINNER SINCE LAST 5 TO 6 MONTHS IN JUL/AUG-2019)
     Route: 065
     Dates: start: 2019
  3. MUCINAC [Concomitant]
     Indication: PRODUCT USED FOR UNKNOWN INDICATION
     Dosage: UNK
     Route: 065
  4. OLMESARTAN [Concomitant]
     Active Substance: OLMESARTAN
     Indication: HYPERTENSION
     Dosage: 20 MILLIGRAM, QD (ONCE A DAY AFTER BREAKFAST SINCE LAST 2 YEARS)
     Route: 065
     Dates: start: 2018
  5. BILASTINE [Concomitant]
     Active Substance: BILASTINE
     Indication: ASTHMA
     Dosage: UNK (ONLY DURING THE WINTERS)
     Route: 065
  6. LEVOLIN (LEVOSALBUTAMOL) [Suspect]
     Active Substance: LEVALBUTEROL
     Dosage: UNK, BID (2 PUFFS)
  7. EFFELYTE [Concomitant]
     Indication: PRODUCT USED FOR UNKNOWN INDICATION
     Dosage: UNK
     Route: 065
  8. CALPOL [Concomitant]
     Active Substance: ACETAMINOPHEN
     Indication: PRODUCT USED FOR UNKNOWN INDICATION
     Dosage: UNK
     Route: 065
  9. SWICH [Concomitant]
     Indication: PRODUCT USED FOR UNKNOWN INDICATION
     Dosage: UNK
     Route: 065
  10. NIVEOLI (BECLOMETHASONE\FORMOTEROL) [Suspect]
     Active Substance: BECLOMETHASONE\FORMOTEROL
     Indication: ASTHMA
     Dosage: UNK, BID (2 PUFFS)
  11. FORACORT 200 [Suspect]
     Active Substance: BUDESONIDE\FORMOTEROL FUMARATE
     Indication: ASTHMA
     Dosage: UNK
  12. LOXOF [Concomitant]
     Indication: PRODUCT USED FOR UNKNOWN INDICATION
     Dosage: UNK, QD X 5 DAYS
     Route: 065
  13. AZITHRAL [Concomitant]
     Dosage: UNK, 500, QD X 3 DAYS
     Route: 065
  14. TIOVA [Concomitant]
     Indication: PRODUCT USED FOR UNKNOWN INDICATION
     Dosage: UNK (2 PUFFS), QD (ONCE DAILY) (CIPLA)
     Route: 065
     Dates: start: 201912
  15. THYROX [Concomitant]
     Indication: HYPERTHYROIDISM
     Dosage: UNK
     Route: 065
     Dates: start: 2018
  16. UNICONTIN [Concomitant]
     Active Substance: THEOPHYLLINE
     Indication: ASTHMA
     Dosage: UNK (UNICONTIN 400 E AND UNICONTIN 600 E (UNICONTIN 600 E ONLY IN WINTERS))
     Route: 065
  17. EBAST M [Concomitant]
     Indication: ANTIALLERGIC THERAPY
     Dosage: UNK, QD (ONCE DAILY)
     Route: 065
  18. MONDESLOR [Concomitant]
     Indication: ANTIALLERGIC THERAPY
     Dosage: UNK, QD (ONCE DAILY)
     Route: 065
  19. EBAST [Concomitant]
     Indication: PRODUCT USED FOR UNKNOWN INDICATION
     Dosage: UNK
     Route: 065
  20. SHELCAL M [Concomitant]
     Indication: PRODUCT USED FOR UNKNOWN INDICATION
     Dosage: UNK
     Route: 065
  21. FORENZA [Concomitant]
     Indication: PRODUCT USED FOR UNKNOWN INDICATION
     Dosage: UNK
     Route: 065
  22. UROPASS [Concomitant]
     Indication: PRODUCT USED FOR UNKNOWN INDICATION
     Dosage: UNK
     Route: 065
  23. NIVEOLI (BECLOMETHASONE\FORMOTEROL) [Suspect]
     Active Substance: BECLOMETHASONE\FORMOTEROL
     Dosage: UNK, BID (2 PUFFS)
  24. AZITHRAL [Concomitant]
     Indication: PRODUCT USED FOR UNKNOWN INDICATION
     Dosage: UNK, 250
     Route: 065

REACTIONS (5)
  - Therapeutic product effect variable [Recovered/Resolved]
  - Inappropriate schedule of product administration [Unknown]
  - Malaise [Unknown]
  - Asthma [Unknown]
  - Device issue [Unknown]
